FAERS Safety Report 8063426-3 (Version None)
Quarter: 2012Q1

REPORT INFORMATION
  Report Type: 
  Country: None (occurrence: None)
  Receive Date: 20120123
  Receipt Date: 20120118
  Transmission Date: 20120608
  Serious: Yes (Other)
  Sender: FDA-Public Use
  Company Number: US-PFIZER INC-2012015087

PATIENT
  Sex: Male

DRUGS (10)
  1. TOPROL-XL [Concomitant]
     Dosage: 25 MG, DAILY
  2. NAMENDA [Concomitant]
     Dosage: 10 MG, 2X/DAY
  3. LIPITOR [Suspect]
     Indication: BLOOD CHOLESTEROL INCREASED
     Dosage: 20 MG, DAILY
  4. ATIVAN [Concomitant]
     Dosage: 1 MG, AS NEEDED
  5. LASIX [Concomitant]
     Dosage: 20 MG, DAILY
  6. ACETYLSALICYLIC ACID [Concomitant]
     Dosage: 375 MG, DAILY
  7. ADVAIR DISKUS 100/50 [Concomitant]
     Dosage: 250/50MG EVERY 12 HOURS AS NEEDED
  8. ENALAPRIL [Concomitant]
     Dosage: 10 MG, DAILY
  9. CALCIUM [Concomitant]
     Dosage: 600 MG, DAILY
  10. MULTI-VITAMINS [Concomitant]
     Dosage: ONE TABLET, 1X/DAY

REACTIONS (1)
  - URINARY TRACT INFECTION [None]
